FAERS Safety Report 7433502-4 (Version None)
Quarter: 2011Q2

REPORT INFORMATION
  Report Type: 
  Country: None (occurrence: None)
  Receive Date: 20110422
  Receipt Date: 20110316
  Transmission Date: 20111010
  Serious: No
  Sender: FDA-Public Use
  Company Number: US-MUTUAL PHARMACEUTICAL COMPANY, INC.-CLCY20110030

PATIENT
  Sex: Male

DRUGS (9)
  1. LEVOTHYROXINE SODIUM [Concomitant]
     Indication: HYPOTHYROIDISM
     Route: 048
  2. FUROSEMIDE [Concomitant]
     Indication: HYPERTENSION
     Route: 048
  3. PLAVIX [Concomitant]
     Indication: ANTICOAGULANT THERAPY
     Route: 048
  4. CARVEDILOL [Concomitant]
     Indication: HYPERTENSION
     Route: 048
  5. RANEXA [Concomitant]
     Indication: ANGINA PECTORIS
     Route: 048
  6. ISOSORBIDE MONONITRATE [Concomitant]
     Indication: ANGINA PECTORIS
     Route: 048
  7. ENALAPRIL MALEATE [Concomitant]
     Indication: HYPERTENSION
     Route: 048
  8. COLCRYS [Suspect]
     Indication: GOUT
     Route: 048
     Dates: start: 20110315, end: 20110315
  9. ASPIRIN [Concomitant]
     Indication: ANTICOAGULANT THERAPY
     Route: 048

REACTIONS (1)
  - DRUG INEFFECTIVE [None]
